FAERS Safety Report 17134597 (Version 3)
Quarter: 2020Q1

REPORT INFORMATION
  Report Type: Spontaneous
  Country: US (occurrence: US)
  Receive Date: 20191210
  Receipt Date: 20200213
  Transmission Date: 20200409
  Serious: Yes (Hospitalization, Other)
  Sender: FDA-Public Use
  Company Number: US-VERTEX PHARMACEUTICALS-2019-012436

PATIENT
  Sex: Male

DRUGS (1)
  1. TRIKAFTA [Suspect]
     Active Substance: ELEXACAFTOR\IVACAFTOR\TEZACAFTOR
     Indication: CYSTIC FIBROSIS
     Dosage: 2 TABLET (100 MG ELEXACAFTOR/ 50 MG TEZACAFTOR/ 75 MG IVACAFTOR) AM; 1 TABLET (150MG IVACAFTOR) PM
     Route: 048
     Dates: start: 20191108, end: 20200206

REACTIONS (1)
  - Rash papular [Unknown]

NARRATIVE: CASE EVENT DATE: 2019
